FAERS Safety Report 25352081 (Version 1)
Quarter: 2025Q2

REPORT INFORMATION
  Report Type: Report from Study
  Country: US (occurrence: US)
  Receive Date: 20250523
  Receipt Date: 20250523
  Transmission Date: 20250717
  Serious: Yes (Other)
  Sender: ABBVIE
  Company Number: US-ABBVIE-6148856

PATIENT
  Sex: Male

DRUGS (2)
  1. CREON [Suspect]
     Active Substance: PANCRELIPASE AMYLASE\PANCRELIPASE LIPASE\PANCRELIPASE PROTEASE
     Indication: Product used for unknown indication
     Route: 048
  2. CREON [Suspect]
     Active Substance: PANCRELIPASE AMYLASE\PANCRELIPASE LIPASE\PANCRELIPASE PROTEASE
     Indication: Product used for unknown indication
     Route: 048

REACTIONS (12)
  - Endocrine pancreatic disorder [Unknown]
  - Antinuclear antibody increased [Unknown]
  - Steatorrhoea [Unknown]
  - Vitamin A decreased [Unknown]
  - Polyarthritis [Unknown]
  - Incorrect dose administered [Unknown]
  - Hypovitaminosis [Unknown]
  - Malabsorption [Unknown]
  - Autoimmune disorder [Unknown]
  - Pulmonary function test decreased [Unknown]
  - Renal cyst [Unknown]
  - Sjogren^s syndrome [Unknown]
